FAERS Safety Report 7682044-X (Version None)
Quarter: 2011Q3

REPORT INFORMATION
  Report Type: 
  Country: None (occurrence: None)
  Receive Date: 20110815
  Receipt Date: 20110802
  Transmission Date: 20111222
  Serious: Yes (Life-Threatening, Hospitalization, Other)
  Sender: FDA-Public Use
  Company Number: US-ELI_LILLY_AND_COMPANY-US200912002144

PATIENT
  Sex: Male

DRUGS (20)
  1. LANTUS [Concomitant]
     Dosage: UNK, EACH EVENING
  2. CALCIUM PLUS D3 [Concomitant]
  3. DIGOXIN [Concomitant]
     Dosage: 0.125 UG, UNK
  4. SYNTHROID [Concomitant]
     Dosage: 75 MG, EACH MORNING
  5. FORTEO [Suspect]
     Dosage: 20 UG, QD
  6. HUMALOG [Concomitant]
  7. INSULIN [Concomitant]
     Indication: DIABETES MELLITUS
  8. CALCIUM WITH VITAMIN D [Concomitant]
     Dosage: 600 MG, 3/D
  9. FORTEO [Suspect]
     Indication: OSTEOPOROSIS
     Dosage: 20 UG, DAILY (1/D)
     Dates: start: 20090101, end: 20090101
  10. FORTEO [Suspect]
     Dosage: 20 UG, DAILY (1/D)
     Dates: start: 20090101
  11. SYNTHROID [Concomitant]
     Dosage: .88 MG, EACH MORNING
  12. ACIPHEX [Concomitant]
     Dosage: 20 UG, EACH MORNING
  13. CENTRUM SILVER [Concomitant]
     Dosage: UNK, DAILY (1/D)
  14. ZOCOR [Concomitant]
     Dosage: UNK, DAILY (1/D)
  15. VITAMIN B-12 [Concomitant]
     Dosage: UNK, MONTHLY (1/M)
  16. SLO-MAG [Concomitant]
     Dosage: UNK, QOD
  17. FORTEO [Suspect]
     Dosage: 20 UG, DAILY (1/D)
  18. ASPIRIN [Concomitant]
     Dosage: 81 MG, UNK
  19. LOVAZA [Concomitant]
     Dosage: UNK, DAILY (1/D)
  20. PLAVIX [Concomitant]
     Dosage: UNK, DAILY (1/D)

REACTIONS (10)
  - WEIGHT DECREASED [None]
  - BLOOD GLUCOSE INCREASED [None]
  - BLOOD POTASSIUM [None]
  - RASH [None]
  - CORONARY ARTERY OCCLUSION [None]
  - BLOOD SODIUM [None]
  - CARDIAC ARREST [None]
  - FLUSHING [None]
  - SKIN REACTION [None]
  - ELECTROLYTE IMBALANCE [None]
